FAERS Safety Report 19506685 (Version 2)
Quarter: 2021Q4

REPORT INFORMATION
  Report Type: Report from Study
  Country: DE (occurrence: DE)
  Receive Date: 20210708
  Receipt Date: 20211028
  Transmission Date: 20220303
  Serious: Yes (Hospitalization)
  Sender: FDA-Public Use
  Company Number: DE-CELGENE-DEU-20201204683

PATIENT
  Age: 58 Year
  Sex: Female
  Weight: 80 kg

DRUGS (22)
  1. ABRAXANE [Suspect]
     Active Substance: PACLITAXEL
     Indication: Ductal adenocarcinoma of pancreas
     Dosage: 236.37 MILLIGRAM CYCLE 1 DAY 1
     Route: 065
     Dates: start: 20200810
  2. ABRAXANE [Suspect]
     Active Substance: PACLITAXEL
     Dosage: CYCLE 1 DAY 8
     Route: 065
     Dates: start: 20200817
  3. ABRAXANE [Suspect]
     Active Substance: PACLITAXEL
     Dosage: CYCLE 1 DAY 15
     Route: 065
     Dates: start: 20200824
  4. ABRAXANE [Suspect]
     Active Substance: PACLITAXEL
     Dosage: CYCLE 2 DAY 1
     Route: 065
     Dates: start: 20200914
  5. ABRAXANE [Suspect]
     Active Substance: PACLITAXEL
     Dosage: CYCLE 2 DAY 8
     Route: 065
     Dates: start: 20200921
  6. ABRAXANE [Suspect]
     Active Substance: PACLITAXEL
     Dosage: CYCLE 2 DAY 15
     Route: 065
     Dates: start: 20200928
  7. ABRAXANE [Suspect]
     Active Substance: PACLITAXEL
     Dosage: CYCLE 3 DAY 1
     Route: 065
     Dates: start: 20201012
  8. ABRAXANE [Suspect]
     Active Substance: PACLITAXEL
     Dosage: CYCLE 3 DAY 8
     Route: 065
     Dates: start: 20201019
  9. ABRAXANE [Suspect]
     Active Substance: PACLITAXEL
     Dosage: CYCLE 3 DAY 8
     Route: 065
     Dates: start: 20201026
  10. GEMCITABINE [Suspect]
     Active Substance: GEMCITABINE
     Indication: Ductal adenocarcinoma of pancreas
     Dosage: CYCLE 1 DAY 1
     Route: 065
     Dates: start: 20200810
  11. GEMCITABINE [Suspect]
     Active Substance: GEMCITABINE
     Indication: Off label use
     Dosage: CYCLE 1 DAY 8
     Route: 065
     Dates: start: 20200817
  12. GEMCITABINE [Suspect]
     Active Substance: GEMCITABINE
     Dosage: CYCLE 1 DAY 15
     Route: 065
     Dates: start: 20200824
  13. GEMCITABINE [Suspect]
     Active Substance: GEMCITABINE
     Dosage: CYCLE 2 DAY 1
     Route: 065
     Dates: start: 20200914
  14. GEMCITABINE [Suspect]
     Active Substance: GEMCITABINE
     Dosage: CYCLE 2 DAY 8
     Route: 065
     Dates: start: 20200921
  15. GEMCITABINE [Suspect]
     Active Substance: GEMCITABINE
     Dosage: CYCLE 2 DAY 15
     Route: 065
     Dates: start: 20200928
  16. GEMCITABINE [Suspect]
     Active Substance: GEMCITABINE
     Dosage: CYCLE 3 DAY 1
     Route: 065
     Dates: start: 20201012
  17. GEMCITABINE [Suspect]
     Active Substance: GEMCITABINE
     Dosage: CYCLE 3 DAY 8
     Route: 065
     Dates: start: 20201019
  18. GEMCITABINE [Suspect]
     Active Substance: GEMCITABINE
     Dosage: CYCLE 3 DAY 15
     Route: 065
     Dates: start: 20201026
  19. AZACITIDINE [Suspect]
     Active Substance: AZACITIDINE
     Indication: Ductal adenocarcinoma of pancreas
     Dosage: 56.73 MILLIGRAM
     Route: 058
     Dates: start: 20200803, end: 20201009
  20. LENALIDOMIDE [Suspect]
     Active Substance: LENALIDOMIDE
     Indication: Ductal adenocarcinoma of pancreas
     Dosage: 10 MILLIGRAM
     Route: 048
     Dates: start: 20201109, end: 20201210
  21. DURVALUMAB [Suspect]
     Active Substance: DURVALUMAB
     Indication: Ductal adenocarcinoma of pancreas
     Dosage: 1500 MILLIGRAM
     Route: 041
     Dates: start: 20201109, end: 20201207
  22. PANTOPRAZOLE [Concomitant]
     Active Substance: PANTOPRAZOLE
     Indication: Prophylaxis
     Dosage: 20 MILLIGRAM
     Route: 048
     Dates: start: 20201212, end: 202012

REACTIONS (1)
  - Neuritis cranial [Recovered/Resolved]

NARRATIVE: CASE EVENT DATE: 20201207
